FAERS Safety Report 19243021 (Version 1)
Quarter: 2021Q2

REPORT INFORMATION
  Report Type: Spontaneous
  Country: AU (occurrence: AU)
  Receive Date: 20210511
  Receipt Date: 20210511
  Transmission Date: 20210717
  Serious: Yes (Other)
  Sender: FDA-Public Use
  Company Number: AU-AMERICAN REGENT INC-2021001217

PATIENT
  Age: 19 Year
  Sex: Female

DRUGS (1)
  1. FERINJECT [Suspect]
     Active Substance: FERRIC CARBOXYMALTOSE
     Indication: PRODUCT USED FOR UNKNOWN INDICATION
     Dosage: UNK

REACTIONS (9)
  - Blood pressure increased [Unknown]
  - Pyrexia [Unknown]
  - Diarrhoea [Unknown]
  - Myalgia [Unknown]
  - Migraine [Unknown]
  - Nausea [Unknown]
  - Malaise [Unknown]
  - Chills [Unknown]
  - Palpitations [Unknown]
